FAERS Safety Report 5603670-5 (Version None)
Quarter: 2008Q1

REPORT INFORMATION
  Report Type: 
  Country: None (occurrence: None)
  Receive Date: 20080123
  Receipt Date: 20080109
  Transmission Date: 20080703
  Serious: Yes (Congenital Anomaly)
  Sender: FDA-Public Use
  Company Number: 2008AP000137

PATIENT
  Sex: Female

DRUGS (1)
  1. PAROXETINE HYDROCHLORIDE [Suspect]
     Dosage: TRPL
     Route: 064

REACTIONS (8)
  - CARDIAC MURMUR [None]
  - CARDIOMEGALY [None]
  - DRUG EXPOSURE DURING PREGNANCY [None]
  - ELECTROCARDIOGRAM ST SEGMENT ABNORMAL [None]
  - PATENT DUCTUS ARTERIOSUS [None]
  - PULMONARY ARTERY ATRESIA [None]
  - RIGHT ATRIAL DILATATION [None]
  - RIGHT VENTRICULAR HYPERTROPHY [None]
